FAERS Safety Report 15289636 (Version 1)
Quarter: 2018Q3

REPORT INFORMATION
  Report Type: Spontaneous
  Country: RU (occurrence: RU)
  Receive Date: 20180817
  Receipt Date: 20180817
  Transmission Date: 20181010
  Serious: Yes (Hospitalization)
  Sender: FDA-Public Use
  Company Number: RU-ASTRAZENECA-2018SE22386

PATIENT
  Age: 69 Year
  Sex: Female
  Weight: 79 kg

DRUGS (6)
  1. FORXIGA [Suspect]
     Active Substance: DAPAGLIFLOZIN
     Indication: TYPE 2 DIABETES MELLITUS
     Route: 048
     Dates: start: 20170113, end: 201706
  2. FORXIGA [Suspect]
     Active Substance: DAPAGLIFLOZIN
     Indication: TYPE 2 DIABETES MELLITUS
     Route: 048
  3. MANINIL [Concomitant]
     Active Substance: GLYBURIDE
  4. ONGLYZA [Concomitant]
     Active Substance: SAXAGLIPTIN HYDROCHLORIDE
  5. ALOGLIPTIN. [Concomitant]
     Active Substance: ALOGLIPTIN
  6. GALVUS [Concomitant]
     Active Substance: VILDAGLIPTIN

REACTIONS (5)
  - Loss of consciousness [Recovered/Resolved]
  - Blood glucose abnormal [Unknown]
  - Dizziness postural [Recovered/Resolved]
  - Upper limb fracture [Recovered/Resolved]
  - Drug ineffective [Not Recovered/Not Resolved]

NARRATIVE: CASE EVENT DATE: 20180509
